FAERS Safety Report 8888596 (Version 3)
Quarter: 2012Q4

REPORT INFORMATION
  Report Type: 
  Country: JP (occurrence: JP)
  Receive Date: 20121106
  Receipt Date: 20121212
  Transmission Date: 20130627
  Serious: Yes (Hospitalization, Other)
  Sender: FDA-Public Use
  Company Number: JP-PFIZER INC-2012274476

PATIENT
  Age: 40 Year
  Sex: Female

DRUGS (3)
  1. ARGATROBAN [Suspect]
     Indication: ANTICOAGULANT THERAPY
     Dosage: UNK
  2. NAFAMOSTAT MESYLATE [Suspect]
     Indication: ANTICOAGULANT THERAPY
     Dosage: UNK
  3. HEPARIN [Suspect]
     Indication: ANTICOAGULANT THERAPY
     Dosage: UNK

REACTIONS (1)
  - Pancreatitis acute [Recovering/Resolving]
